FAERS Safety Report 14770852 (Version 1)
Quarter: 2018Q2

REPORT INFORMATION
  Report Type: Spontaneous
  Country: US (occurrence: US)
  Receive Date: 20180417
  Receipt Date: 20180417
  Transmission Date: 20180711
  Serious: No
  Sender: FDA-Public Use
  Company Number: US-ABBVIE-18P-163-2217209-00

PATIENT
  Age: 8 Year
  Sex: Female
  Weight: 45.1 kg

DRUGS (1)
  1. LUPRON DEPOT-PED [Suspect]
     Active Substance: LEUPROLIDE ACETATE
     Indication: PRECOCIOUS PUBERTY
     Route: 030
     Dates: start: 201704

REACTIONS (5)
  - Drug ineffective [Not Recovered/Not Resolved]
  - Hair growth abnormal [Not Recovered/Not Resolved]
  - Oestradiol increased [Not Recovered/Not Resolved]
  - Breast disorder [Not Recovered/Not Resolved]
  - Body height increased [Not Recovered/Not Resolved]
